FAERS Safety Report 13801347 (Version 2)
Quarter: 2017Q3

REPORT INFORMATION
  Report Type: Report from Study
  Country: IN (occurrence: IN)
  Receive Date: 20170727
  Receipt Date: 20170804
  Transmission Date: 20171127
  Serious: Yes (Death, Other)
  Sender: FDA-Public Use
  Company Number: IN-BRISTOL-MYERS SQUIBB COMPANY-BMS-2017-064475

PATIENT
  Age: 31 Year
  Sex: Male

DRUGS (1)
  1. DASATINIB [Suspect]
     Active Substance: DASATINIB
     Indication: CHRONIC MYELOID LEUKAEMIA
     Dosage: 140 MG, ONE TIME DOSE
     Route: 048
     Dates: start: 20170426, end: 20170526

REACTIONS (2)
  - Malignant neoplasm progression [Fatal]
  - Liver disorder [Fatal]
